FAERS Safety Report 14283800 (Version 3)
Quarter: 2018Q1

REPORT INFORMATION
  Report Type: Spontaneous
  Country: RO (occurrence: RO)
  Receive Date: 20171214
  Receipt Date: 20180316
  Transmission Date: 20180509
  Serious: Yes (Other)
  Sender: FDA-Public Use
  Company Number: RO-AUROBINDO-AUR-APL-2017-45243

PATIENT
  Age: 60 Year
  Sex: Female

DRUGS (25)
  1. METFORMIN [Suspect]
     Active Substance: METFORMIN HYDROCHLORIDE
     Indication: DIABETES MELLITUS
     Dosage: DOSAGE FORM: UNSPECIFIED, 1000 MG
     Route: 065
  2. RILMENIDINE [Suspect]
     Active Substance: RILMENIDINE
     Indication: HYPERTENSION
     Dosage: 1.5 MG
     Route: 065
  3. ALLOPURINOL. [Suspect]
     Active Substance: ALLOPURINOL
     Indication: PRODUCT USED FOR UNKNOWN INDICATION
     Dosage: 10 MG
     Route: 065
  4. LEVOCETIRIZINE DIHYDROCHLORIDE. [Suspect]
     Active Substance: LEVOCETIRIZINE DIHYDROCHLORIDE
     Indication: HYPERTENSION
     Dosage: 5 MG, AS NEEDED
  5. HYDROCHLOROTHIAZIDE W/TELMISARTAN [Suspect]
     Active Substance: HYDROCHLOROTHIAZIDE\TELMISARTAN
     Indication: HYPERTENSION
     Dosage: UNK ()
     Route: 065
  6. CETIRIZINE DIHCL [Suspect]
     Active Substance: CETIRIZINE HYDROCHLORIDE
     Indication: ALLERGIC REACTION TO EXCIPIENT
     Dosage: UNK ()
     Route: 048
  7. ALLOPURINOL. [Suspect]
     Active Substance: ALLOPURINOL
     Dosage: DOSAGE FORM: UNSPECIFIED, 100 MG, UNK
     Route: 065
  8. LEVOCETIRIZINE DIHYDROCHLORIDE. [Suspect]
     Active Substance: LEVOCETIRIZINE DIHYDROCHLORIDE
     Indication: ALLERGIC REACTION TO EXCIPIENT
     Dosage: DOSAGE FORM: UNSPECIFIED, 5 MG, AS NEEDED (PRN); AS REQUIRED ; AS NECESSARY
     Route: 065
  9. LACTOSE [Suspect]
     Active Substance: LACTOSE
     Indication: PRODUCT USED FOR UNKNOWN INDICATION
     Dosage: DOSAGE FORM: UNSPECIFIED ()
     Route: 065
  10. ALLOPURINOL. [Suspect]
     Active Substance: ALLOPURINOL
     Indication: HYPERURICAEMIA
     Dosage: DOSAGE FORM: UNSPECIFIED, 100 MG, UNK
  11. METOPROLOL. [Suspect]
     Active Substance: METOPROLOL
     Indication: HYPERTENSION
     Dosage: UNK ()
     Route: 065
  12. METOPROLOL. [Suspect]
     Active Substance: METOPROLOL
     Dosage: DOSAGE FORM: UNSPECIFIED, 50 MG LONG RELEASE
     Route: 065
  13. CETIRIZINE DIHCL [Suspect]
     Active Substance: CETIRIZINE HYDROCHLORIDE
     Dosage: UNK
     Route: 048
  14. PERINDOPRIL TERT BUTYLAMINE/INDAPAMIDE A [Suspect]
     Active Substance: INDAPAMIDE\PERINDOPRIL ERBUMINE
     Indication: PRODUCT USED FOR UNKNOWN INDICATION
     Route: 065
  15. MICARDIS PLUS [Suspect]
     Active Substance: HYDROCHLOROTHIAZIDE\TELMISARTAN
     Indication: HYPERTENSION
     Dosage: DOSAGE FORM: UNSPECIFIED, 12.5 MG/ 80MG ()
     Route: 065
  16. PERINDOPRIL ERBUMINE. [Suspect]
     Active Substance: PERINDOPRIL ERBUMINE
     Indication: PRODUCT USED FOR UNKNOWN INDICATION
     Dosage: DOSAGE FORM: UNSPECIFIED ()
     Route: 065
  17. METOPROLOL. [Suspect]
     Active Substance: METOPROLOL
     Dosage: DOSAGE FORM: UNSPECIFIED, 50 MG LONG RELEASE ()
     Route: 065
  18. ALLOPURINOL. [Suspect]
     Active Substance: ALLOPURINOL
     Dosage: 100 MILLIGRAM
     Route: 065
  19. ALLOPURINOL. [Suspect]
     Active Substance: ALLOPURINOL
     Dosage: DOSAGE FORM: UNSPECIFIED, 100 MG, UNK
  20. AMLODIPINE [Suspect]
     Active Substance: AMLODIPINE BESYLATE
     Indication: HYPERTENSION
     Dosage: 10 MG
     Route: 065
  21. AMLODIPINE [Suspect]
     Active Substance: AMLODIPINE BESYLATE
     Dosage: DOSAGE FORM: UNSPECIFIED, 10 MG
     Route: 065
  22. RILMENIDINE [Suspect]
     Active Substance: RILMENIDINE
     Dosage: DOSAGE FORM: UNSPECIFIED
     Route: 048
  23. LEVOCETIRIZINE DIHYDROCHLORIDE. [Suspect]
     Active Substance: LEVOCETIRIZINE DIHYDROCHLORIDE
     Dosage: DOSAGE FORM: UNSPECIFIED, 5 MG, AS NEEDED (PRN); AS REQUIRED ; AS NECESSARY
     Route: 065
  24. METFORMIN [Suspect]
     Active Substance: METFORMIN HYDROCHLORIDE
     Indication: PRODUCT USED FOR UNKNOWN INDICATION
     Dosage: 1000 MG
     Route: 065
  25. RILMENIDINE [Suspect]
     Active Substance: RILMENIDINE
     Dosage: DOSAGE FORM: UNSPECIFIED
     Route: 048

REACTIONS (5)
  - Angioedema [Recovered/Resolved]
  - Allergic reaction to excipient [Recovered/Resolved]
  - Urticaria [Recovered/Resolved]
  - Swelling face [Unknown]
  - Product use issue [Recovered/Resolved]

NARRATIVE: CASE EVENT DATE: 20170101
